FAERS Safety Report 14999380 (Version 3)
Quarter: 2018Q3

REPORT INFORMATION
  Report Type: Spontaneous
  Country: US (occurrence: US)
  Receive Date: 20180612
  Receipt Date: 20180827
  Transmission Date: 20181010
  Serious: Yes (Other)
  Sender: FDA-Public Use
  Company Number: US-PFIZER INC-2018235094

PATIENT
  Age: 74 Year
  Sex: Female
  Weight: 102 kg

DRUGS (9)
  1. IBRANCE [Suspect]
     Active Substance: PALBOCICLIB
     Indication: BREAST CANCER METASTATIC
     Dosage: 125 MG, CYCLIC (ONCE A DAY WITH A MEAL, 21 DAYS ON AND 7 DAYS OFF)
     Route: 048
     Dates: start: 20180526
  2. ELIQUIS [Concomitant]
     Active Substance: APIXABAN
     Indication: ATRIAL FIBRILLATION
     Dosage: 5 MG, 2 TIMES A DAY
     Route: 048
  3. LEVOTHYROXINE. [Concomitant]
     Active Substance: LEVOTHYROXINE
     Indication: HYPOTHYROIDISM
     Dosage: 125 UG, DAILY
     Route: 048
  4. VITAMIN D [Concomitant]
     Active Substance: CHOLECALCIFEROL
     Indication: NEOPLASM PROPHYLAXIS
     Dosage: 2000 IU, DAILY
     Route: 048
  5. IBRANCE [Suspect]
     Active Substance: PALBOCICLIB
     Dosage: UNK
  6. LETROZOLE. [Suspect]
     Active Substance: LETROZOLE
     Indication: BREAST CANCER METASTATIC
     Dosage: 25 MG, 1X/DAY
     Dates: start: 201805
  7. NIFEDIPINE. [Concomitant]
     Active Substance: NIFEDIPINE
     Indication: BLOOD PRESSURE ABNORMAL
     Dosage: 60 MG, ONCE A DAY
     Route: 048
  8. XGEVA [Concomitant]
     Active Substance: DENOSUMAB
     Dosage: UNK, MONTHLY (ONE TIME PER MONTH)
  9. VALSARTAN. [Concomitant]
     Active Substance: VALSARTAN
     Indication: BLOOD PRESSURE ABNORMAL
     Dosage: 320 MG, 1X/DAY
     Route: 048

REACTIONS (3)
  - Dyspnoea [Not Recovered/Not Resolved]
  - Loss of personal independence in daily activities [Unknown]
  - Tooth abscess [Not Recovered/Not Resolved]

NARRATIVE: CASE EVENT DATE: 20180601
